FAERS Safety Report 10668027 (Version 1)
Quarter: 2014Q4

REPORT INFORMATION
  Report Type: Spontaneous
  Country: US (occurrence: US)
  Receive Date: 20141222
  Receipt Date: 20141222
  Transmission Date: 20150529
  Serious: No
  Sender: FDA-Public Use
  Company Number: US-GLAXOSMITHKLINE-A1074761A

PATIENT

DRUGS (4)
  1. SORIATANE [Suspect]
     Active Substance: ACITRETIN
     Indication: FURUNCLE
  2. NO CONCURRENT MEDICATION [Concomitant]
     Active Substance: UNSPECIFIED INGREDIENT
  3. SORIATANE [Suspect]
     Active Substance: ACITRETIN
     Indication: PROPHYLAXIS
  4. SORIATANE [Suspect]
     Active Substance: ACITRETIN
     Indication: CYST
     Route: 048
     Dates: start: 201305

REACTIONS (3)
  - Therapeutic response unexpected [Unknown]
  - Off label use [Unknown]
  - Drug ineffective [Unknown]

NARRATIVE: CASE EVENT DATE: 201404
